FAERS Safety Report 9639056 (Version 3)
Quarter: 2016Q2

REPORT INFORMATION
  Report Type: Spontaneous
  Country: SE (occurrence: SE)
  Receive Date: 20131022
  Receipt Date: 20160614
  Transmission Date: 20160815
  Serious: Yes (Other)
  Sender: FDA-Public Use
  Company Number: SE-GLAXOSMITHKLINE-A1045949A

PATIENT
  Age: 64 Year
  Sex: Female

DRUGS (7)
  1. NICORETTE [Suspect]
     Active Substance: NICOTINE
     Indication: SMOKING CESSATION THERAPY
     Dosage: 4 MG, UNK
     Route: 048
     Dates: start: 20131006, end: 20131007
  2. CROMOGLICATE SODIUM [Concomitant]
     Active Substance: CROMOLYN SODIUM
     Indication: HYPERSENSITIVITY
     Dosage: UNK
     Route: 045
  3. BETAPRED [Concomitant]
     Active Substance: BETAMETHASONE SODIUM PHOSPHATE
     Indication: HYPERSENSITIVITY
     Dosage: DOSAGE FORM: UNSPECIFIED
     Route: 065
  4. SODIUM CHLORIDE. [Concomitant]
     Active Substance: SODIUM CHLORIDE
     Indication: HYPERSENSITIVITY
     Dosage: UNK
     Route: 045
  5. SIMETHICONE (DIMETHICONE) [Concomitant]
     Active Substance: DIMETHICONE
     Indication: GASTRIC DISORDER
     Dosage: DOSAGE FORM: UNSPECIFIED
     Route: 065
  6. RHINOCORT (BUDESONID) [Concomitant]
     Indication: HYPERSENSITIVITY
     Dosage: UNK
     Route: 045
  7. NICORETTE [Concomitant]
     Active Substance: NICOTINE
     Indication: SMOKING CESSATION THERAPY
     Dosage: 2 MG, UNK
     Route: 048

REACTIONS (10)
  - Pallor [Recovering/Resolving]
  - Oropharyngeal pain [Recovering/Resolving]
  - Dyspnoea [Recovering/Resolving]
  - Laryngospasm [Recovering/Resolving]
  - Dizziness [Recovering/Resolving]
  - Poisoning [Recovering/Resolving]
  - Feeling abnormal [Recovering/Resolving]
  - Reaction to drug excipients [Recovering/Resolving]
  - Cough [Recovering/Resolving]
  - Dysphonia [Recovering/Resolving]

NARRATIVE: CASE EVENT DATE: 20131006
